FAERS Safety Report 4372633-2 (Version None)
Quarter: 2004Q2

REPORT INFORMATION
  Report Type: 
  Country: None (occurrence: None)
  Receive Date: 20040526
  Receipt Date: 20040514
  Transmission Date: 20050107
  Serious: Yes (Hospitalization)
  Sender: FDA-Public Use
  Company Number: 200403792

PATIENT
  Age: 5 Year
  Sex: Female
  Weight: 16.7831 kg

DRUGS (3)
  1. MOTRIN [Suspect]
     Indication: PYREXIA
     Dates: start: 20040401
  2. TYLENOL [Suspect]
     Indication: PYREXIA
     Dates: start: 20040401
  3. ALBUTEROL [Concomitant]

REACTIONS (4)
  - APHASIA [None]
  - HEART RATE INCREASED [None]
  - LETHARGY [None]
  - PYREXIA [None]
